FAERS Safety Report 7602795-2 (Version None)
Quarter: 2011Q3

REPORT INFORMATION
  Report Type: 
  Country: None (occurrence: None)
  Receive Date: 20110712
  Receipt Date: 20110628
  Transmission Date: 20111222
  Serious: Yes (Life-Threatening, Hospitalization)
  Sender: FDA-Public Use
  Company Number: JP-JNJFOC-20101205660

PATIENT
  Age: 37 Year
  Sex: Male
  Weight: 53 kg

DRUGS (3)
  1. REMICADE [Suspect]
     Indication: ANKYLOSING SPONDYLITIS
     Dosage: TOTAL DOSE 275 MG FOR INFUSION 1
     Route: 042
     Dates: start: 20100819
  2. AZULFIDINE [Concomitant]
     Route: 048
     Dates: start: 20090801
  3. REMICADE [Suspect]
     Route: 042
     Dates: start: 20101111

REACTIONS (14)
  - VENTRICULAR FIBRILLATION [None]
  - CARDIO-RESPIRATORY ARREST [None]
  - BRADYCARDIA [None]
  - ADVERSE EVENT [None]
  - ANAPHYLACTIC SHOCK [None]
  - INAPPROPRIATE SCHEDULE OF DRUG ADMINISTRATION [None]
  - TORSADE DE POINTES [None]
  - ARTERIOSPASM CORONARY [None]
  - JOINT ANKYLOSIS [None]
  - ELECTROCARDIOGRAM QT PROLONGED [None]
  - INFUSION RELATED REACTION [None]
  - VENTRICULAR TACHYCARDIA [None]
  - TONIC CONVULSION [None]
  - PNEUMONIA [None]
